FAERS Safety Report 7557461-9 (Version None)
Quarter: 2011Q2

REPORT INFORMATION
  Report Type: 
  Country: None (occurrence: None)
  Receive Date: 20110620
  Receipt Date: 20110607
  Transmission Date: 20111010
  Serious: Yes (Hospitalization, Other)
  Sender: FDA-Public Use
  Company Number: US-ROCHE-782647

PATIENT
  Sex: Female

DRUGS (3)
  1. CARBOPLATIN [Suspect]
     Indication: FALLOPIAN TUBE CANCER
     Route: 042
  2. BEVACIZUMAB [Suspect]
     Indication: FALLOPIAN TUBE CANCER
     Dosage: 28-DECEMBER 2010
     Route: 042
     Dates: start: 20100422, end: 20101228
  3. PACLITAXEL [Suspect]
     Indication: FALLOPIAN TUBE CANCER
     Dosage: FREQUENCY: ON DAY 1, 8, 15
     Route: 042

REACTIONS (12)
  - SPEECH DISORDER [None]
  - PSYCHOTIC DISORDER [None]
  - CONFUSIONAL STATE [None]
  - HEADACHE [None]
  - HYPERTENSION [None]
  - BLOOD SODIUM DECREASED [None]
  - LEUKOENCEPHALOPATHY [None]
  - CONVULSION [None]
  - CEREBRAL ISCHAEMIA [None]
  - AGITATION [None]
  - ENCEPHALOPATHY [None]
  - ATAXIA [None]
